FAERS Safety Report 6177707-1 (Version None)
Quarter: 2009Q2

REPORT INFORMATION
  Report Type: 
  Country: None (occurrence: None)
  Receive Date: 20090504
  Receipt Date: 20090423
  Transmission Date: 20091009
  Serious: Yes (Life-Threatening, Hospitalization)
  Sender: FDA-Public Use
  Company Number: IN-RANBAXY-2006RR-04580

PATIENT
  Age: 20 Year
  Sex: Male

DRUGS (1)
  1. AMLODIPINE [Suspect]
     Dosage: 10 MG, UNK
     Route: 048

REACTIONS (2)
  - INTENTIONAL OVERDOSE [None]
  - NON-CARDIOGENIC PULMONARY OEDEMA [None]
